FAERS Safety Report 9186506 (Version 7)
Quarter: 2015Q2

REPORT INFORMATION
  Report Type: Spontaneous
  Country: US (occurrence: US)
  Receive Date: 20130325
  Receipt Date: 20150618
  Transmission Date: 20150821
  Serious: Yes (Other)
  Sender: FDA-Public Use
  Company Number: US-PFIZER INC-2013093787

PATIENT
  Age: 62 Year
  Sex: Female
  Weight: 68.27 kg

DRUGS (13)
  1. LYRICA [Suspect]
     Active Substance: PREGABALIN
     Dosage: 150 MG, 2X/DAY
     Dates: start: 2011
  2. LYRICA [Suspect]
     Active Substance: PREGABALIN
     Dosage: 150 MG, 2X/DAY
     Route: 048
  3. TRAMADOL [Concomitant]
     Active Substance: TRAMADOL
     Dosage: 2 A DAY
  4. HYDROCHLOROTHIAZIDE. [Concomitant]
     Active Substance: HYDROCHLOROTHIAZIDE
     Indication: DIURETIC THERAPY
     Dosage: UNK
  5. LOVAZA [Concomitant]
     Active Substance: OMEGA-3-ACID ETHYL ESTERS
     Dosage: 4 A DAY
  6. NIACIN. [Concomitant]
     Active Substance: NIACIN
     Dosage: UNK
  7. FLUOXETINE [Concomitant]
     Active Substance: FLUOXETINE\FLUOXETINE HYDROCHLORIDE
     Dosage: UNK
  8. LISINOPRIL. [Concomitant]
     Active Substance: LISINOPRIL
     Indication: HYPERTENSION
     Dosage: 20 MG, 2X/DAY
  9. LYRICA [Suspect]
     Active Substance: PREGABALIN
     Indication: NEUROPATHY PERIPHERAL
     Dosage: 150 MG, 1X/DAY
     Dates: start: 2009, end: 2011
  10. METFORMIN [Concomitant]
     Active Substance: METFORMIN HYDROCHLORIDE
     Indication: GLUCOSE TOLERANCE IMPAIRED
     Dosage: 500 MG, 1X/DAY
  11. MILK THISTLE [Concomitant]
     Active Substance: MILK THISTLE
     Dosage: UNK
  12. RED YEAST RICE [Concomitant]
     Active Substance: DIETARY SUPPLEMENT
     Dosage: UNK
  13. TRAMADOL [Concomitant]
     Active Substance: TRAMADOL
     Indication: PAIN
     Dosage: UNK, AS NEEDED (3 A DAY )

REACTIONS (20)
  - Intentional product misuse [Unknown]
  - Pain [Not Recovered/Not Resolved]
  - Hypoaesthesia [Unknown]
  - Eating disorder [Unknown]
  - Malaise [Unknown]
  - Abasia [Unknown]
  - Nausea [Unknown]
  - Insomnia [Unknown]
  - Pain [Unknown]
  - Feeling abnormal [Unknown]
  - Breast disorder [Unknown]
  - Drug withdrawal syndrome [Unknown]
  - Headache [Unknown]
  - Discomfort [Unknown]
  - Drug ineffective [Unknown]
  - Pain in extremity [Not Recovered/Not Resolved]
  - Pain [Unknown]
  - Condition aggravated [Not Recovered/Not Resolved]
  - Paraesthesia [Not Recovered/Not Resolved]
  - Fluid intake reduced [Unknown]

NARRATIVE: CASE EVENT DATE: 2011
